FAERS Safety Report 8845675 (Version 1)
Quarter: 2012Q4

REPORT INFORMATION
  Report Type: Report from Study
  Country: SE (occurrence: SE)
  Receive Date: 20121017
  Receipt Date: 20121017
  Transmission Date: 20130627
  Serious: Yes (Hospitalization)
  Sender: FDA-Public Use
  Company Number: SE-ROCHE-1144942

PATIENT

DRUGS (3)
  1. CAPECITABINE [Suspect]
     Indication: BREAST CANCER
     Dosage: Date of last dose prior to SAE: 10/May/2012
     Route: 065
     Dates: start: 20120314, end: 20120510
  2. BEVACIZUMAB [Suspect]
     Indication: BREAST CANCER
     Route: 065
     Dates: start: 20120313
  3. CYCLOPHOSPHAMIDE [Suspect]
     Indication: BREAST CANCER
     Route: 065
     Dates: start: 20120314

REACTIONS (2)
  - Dysphagia [Recovered/Resolved with Sequelae]
  - Oesophageal stenosis [Recovered/Resolved with Sequelae]
